FAERS Safety Report 9826794 (Version 1)
Quarter: 2014Q1

REPORT INFORMATION
  Report Type: Spontaneous
  Country: US (occurrence: US)
  Receive Date: 20140117
  Receipt Date: 20140117
  Transmission Date: 20141002
  Serious: No
  Sender: FDA-Public Use
  Company Number: US-BIOGENIDEC-2014BI003790

PATIENT
  Age: 51 Year
  Sex: Female

DRUGS (5)
  1. TECFIDERA [Suspect]
     Indication: MULTIPLE SCLEROSIS
     Route: 048
     Dates: start: 201311
  2. ZOLOFT [Concomitant]
  3. VITAMIN D [Concomitant]
  4. VITAMIN B12 [Concomitant]
  5. TOPIRAMATE [Concomitant]

REACTIONS (5)
  - Oropharyngeal pain [Recovered/Resolved]
  - Blister infected [Recovered/Resolved]
  - Fatigue [Unknown]
  - Asthenia [Unknown]
  - Flushing [Unknown]
